FAERS Safety Report 5735262-1 (Version None)
Quarter: 2008Q2

REPORT INFORMATION
  Report Type: 
  Country: None (occurrence: None)
  Receive Date: 20080512
  Receipt Date: 20080505
  Transmission Date: 20081010
  Serious: Yes (Death, Hospitalization)
  Sender: FDA-Public Use
  Company Number: IL-KINGPHARMUSA00001-K200800521

PATIENT

DRUGS (2)
  1. SEPTRA [Suspect]
  2. SILVADENE CREAM 1% [Suspect]

REACTIONS (6)
  - LEUKOCYTOSIS [None]
  - PYREXIA [None]
  - RENAL IMPAIRMENT [None]
  - SEPSIS [None]
  - SKIN EXFOLIATION [None]
  - TOXIC EPIDERMAL NECROLYSIS [None]
